FAERS Safety Report 22846581 (Version 2)
Quarter: 2025Q1

REPORT INFORMATION
  Report Type: Spontaneous
  Country: US (occurrence: US)
  Receive Date: 20230822
  Receipt Date: 20250317
  Transmission Date: 20250409
  Serious: Yes (Other)
  Sender: SANOFI AVENTIS
  Company Number: US-SA-SAC20230821000702

PATIENT
  Age: 71 Year
  Sex: Male

DRUGS (1)
  1. DUPIXENT [Suspect]
     Active Substance: DUPILUMAB
     Indication: Dermatitis atopic
     Dosage: 300 MG, QOW
     Route: 058
     Dates: start: 202103, end: 202411

REACTIONS (12)
  - Dislocation of vertebra [Unknown]
  - Pain [Unknown]
  - Burning sensation [Unknown]
  - Malaise [Unknown]
  - Post-traumatic stress disorder [Unknown]
  - Stenosis [Unknown]
  - Disturbance in attention [Unknown]
  - Mobility decreased [Unknown]
  - Rebound atopic dermatitis [Unknown]
  - Rash [Unknown]
  - Pruritus [Unknown]
  - Insomnia [Unknown]

NARRATIVE: CASE EVENT DATE: 20250201
